FAERS Safety Report 6102913-1 (Version None)
Quarter: 2009Q1

REPORT INFORMATION
  Report Type: 
  Country: None (occurrence: None)
  Receive Date: 20090303
  Receipt Date: 20090303
  Transmission Date: 20090719
  Serious: Yes (Other)
  Sender: FDA-Public Use
  Company Number: None

PATIENT
  Age: 66 Year
  Sex: Male
  Weight: 88.4514 kg

DRUGS (2)
  1. SINGULAIR [Suspect]
     Indication: ASTHMA
     Dosage: 1 TABLET DAILY PO
     Route: 048
     Dates: start: 20090221, end: 20090227
  2. SINGULAIR [Suspect]
     Indication: COUGH
     Dosage: 1 TABLET DAILY PO
     Route: 048
     Dates: start: 20090221, end: 20090227

REACTIONS (2)
  - CONDITION AGGRAVATED [None]
  - MUSCLE SPASMS [None]
